APPROVED DRUG PRODUCT: FULVESTRANT
Active Ingredient: FULVESTRANT
Strength: 250MG/5ML (50MG/ML)
Dosage Form/Route: SOLUTION;INTRAMUSCULAR
Application: A214682 | Product #001 | TE Code: AO
Applicant: JIANGSU HANSOH PHARMACEUTICAL GROUP CO LTD
Approved: Feb 10, 2022 | RLD: No | RS: No | Type: RX